FAERS Safety Report 7118547-6 (Version None)
Quarter: 2010Q4

REPORT INFORMATION
  Report Type: 
  Country: None (occurrence: None)
  Receive Date: 20101025
  Receipt Date: 20100727
  Transmission Date: 20110411
  Serious: Yes (Hospitalization)
  Sender: FDA-Public Use
  Company Number: AMI0023496

PATIENT
  Age: 87 Year
  Sex: Female

DRUGS (2)
  1. TIMOLOL MALEATE [Suspect]
     Indication: GLAUCOMA
     Dosage: 1 DROPS/BID/046
     Dates: start: 20090211, end: 20090516
  2. COSOPT [Suspect]
     Indication: GLAUCOMA
     Dosage: 1 DROPS/AM/046
     Dates: start: 20090517

REACTIONS (5)
  - ABASIA [None]
  - DYSSTASIA [None]
  - HEART RATE DECREASED [None]
  - MUSCULAR WEAKNESS [None]
  - SPINAL COLUMN STENOSIS [None]
